FAERS Safety Report 9792878 (Version 2)
Quarter: 2014Q2

REPORT INFORMATION
  Report Type: Spontaneous
  Country: US (occurrence: US)
  Receive Date: 20140102
  Receipt Date: 20140402
  Transmission Date: 20141212
  Serious: No
  Sender: FDA-Public Use
  Company Number: US-SA-2013SA128210

PATIENT
  Age: 46 Year
  Sex: Female

DRUGS (8)
  1. AUBAGIO [Suspect]
     Indication: MULTIPLE SCLEROSIS
     Route: 065
     Dates: start: 20130415
  2. VITAMIN D3 [Concomitant]
     Indication: NUTRITIONAL SUPPLEMENTATION
     Route: 048
     Dates: start: 20120409
  3. VITAMIN D3 [Concomitant]
     Indication: NUTRITIONAL SUPPLEMENTATION
     Route: 048
     Dates: start: 20120829
  4. SONATA [Concomitant]
     Indication: INSOMNIA
     Route: 048
     Dates: start: 20101222
  5. TAGAMET [Concomitant]
     Indication: GASTROOESOPHAGEAL REFLUX DISEASE
     Dosage: AS NEEDED
     Route: 048
     Dates: start: 20101222
  6. BENADRYL [Concomitant]
     Indication: INSOMNIA
     Dosage: AS NEEDED
     Route: 048
     Dates: start: 20101222
  7. TRAMADOL HYDROCHLORIDE [Concomitant]
     Indication: INSOMNIA
     Dosage: AS NEEDED
     Route: 048
     Dates: start: 20130515
  8. GABAPENTIN [Concomitant]
     Indication: NEURALGIA
     Route: 048
     Dates: start: 20130923

REACTIONS (1)
  - Alopecia [Recovered/Resolved]
